FAERS Safety Report 5994903-4 (Version None)
Quarter: 2008Q4

REPORT INFORMATION
  Report Type: 
  Country: None (occurrence: None)
  Receive Date: 20081212
  Receipt Date: 20080917
  Transmission Date: 20090506
  Serious: No
  Sender: FDA-Public Use
  Company Number: US-ABBOTT-08P-163-0476938-00

PATIENT
  Sex: Male
  Weight: 148 kg

DRUGS (1)
  1. HUMIRA [Suspect]
     Indication: PSORIASIS
     Dates: start: 20080910

REACTIONS (3)
  - ACCIDENTAL EXPOSURE [None]
  - EAR PAIN [None]
  - HEARING IMPAIRED [None]
